FAERS Safety Report 8857982 (Version 2)
Quarter: 2015Q4

REPORT INFORMATION
  Report Type: Report from Study
  Country: US (occurrence: US)
  Receive Date: 20121024
  Receipt Date: 20151012
  Transmission Date: 20160305
  Serious: No
  Sender: FDA-Public Use
  Company Number: US-AMGEN-USASP2012002863

PATIENT
  Age: 26 Year
  Sex: Female
  Weight: 81.18 kg

DRUGS (9)
  1. VITAMIN E [Concomitant]
     Active Substance: .ALPHA.-TOCOPHEROL
     Dosage: UNK
  2. DEPO-PROVERA [Concomitant]
     Active Substance: MEDROXYPROGESTERONE ACETATE
     Dosage: 150 MG/ML, Q3MO
  3. ENBREL [Suspect]
     Active Substance: ETANERCEPT
     Dosage: 50 MG, QWK
     Route: 058
     Dates: start: 20051222, end: 200710
  4. ENBREL [Suspect]
     Active Substance: ETANERCEPT
     Dosage: UNK
     Route: 065
     Dates: start: 20091022
  5. VITAMIN D2 + CALCIUM               /00188401/ [Concomitant]
     Dosage: 125 UNIT, UNK
     Route: 048
  6. VITAMIN D2 + CALCIUM               /00188401/ [Concomitant]
     Dosage: 500 MG, UNK
     Route: 048
  7. ENBREL [Suspect]
     Active Substance: ETANERCEPT
     Indication: RHEUMATOID ARTHRITIS
     Dosage: 50 MG, QWK
     Route: 065
     Dates: start: 19881216, end: 20111230
  8. VITAMIN C [Concomitant]
     Active Substance: ASCORBIC ACID
     Dosage: UNK
  9. ORTHO CYCLEN [Concomitant]
     Active Substance: ETHINYL ESTRADIOL\NORGESTIMATE
     Dosage: UNK UNK, QD
     Route: 048

REACTIONS (25)
  - Erythema [Unknown]
  - Induced labour [Recovered/Resolved]
  - Joint swelling [Unknown]
  - Arthritis [Unknown]
  - Joint crepitation [Unknown]
  - Oedema peripheral [Unknown]
  - Arthralgia [Unknown]
  - Swelling [Unknown]
  - Hypoaesthesia [Unknown]
  - Fatigue [Unknown]
  - Joint effusion [Unknown]
  - Pregnancy [Recovered/Resolved]
  - Body temperature increased [Unknown]
  - Dysstasia [Unknown]
  - Tinel^s sign [Unknown]
  - Cough [Unknown]
  - Eczema [Unknown]
  - Tenderness [Unknown]
  - Joint range of motion decreased [Unknown]
  - Carpal tunnel syndrome [Unknown]
  - Blood pressure increased [Unknown]
  - Gait disturbance [Unknown]
  - Weight increased [Unknown]
  - Fall [Unknown]
  - Dermatitis [Unknown]

NARRATIVE: CASE EVENT DATE: 20080623
